FAERS Safety Report 14176703 (Version 1)
Quarter: 2017Q4

REPORT INFORMATION
  Report Type: Spontaneous
  Country: US (occurrence: None)
  Receive Date: 20171110
  Receipt Date: 20171110
  Transmission Date: 20180321
  Serious: Yes (Hospitalization)
  Sender: FDA-Public Use
  Company Number: None

PATIENT
  Age: 67 Year
  Sex: Female
  Weight: 99.5 kg

DRUGS (1)
  1. CISPLATIN. [Suspect]
     Active Substance: CISPLATIN
     Dates: end: 20171021

REACTIONS (7)
  - Cystitis [None]
  - Diarrhoea [None]
  - Asthenia [None]
  - Nausea [None]
  - Sepsis [None]
  - Dizziness [None]
  - Dehydration [None]

NARRATIVE: CASE EVENT DATE: 20171106
